FAERS Safety Report 24620560 (Version 1)
Quarter: 2024Q4

REPORT INFORMATION
  Report Type: Other
  Country: US (occurrence: US)
  Receive Date: 20241114
  Receipt Date: 20241114
  Transmission Date: 20250115
  Serious: Yes (Hospitalization)
  Sender: MISSION PHARMACAL COMPANY
  Company Number: US-Mission Pharmacal Company-2165050

PATIENT
  Age: 38 Year
  Sex: Male

DRUGS (2)
  1. THIOLA EC [Suspect]
     Active Substance: TIOPRONIN
     Indication: Ureterolithiasis
     Dates: start: 20200115, end: 20220719
  2. THIOLA EC [Suspect]
     Active Substance: TIOPRONIN
     Indication: Nephrolithiasis

REACTIONS (2)
  - Back pain [Unknown]
  - Drug ineffective [Unknown]
